FAERS Safety Report 17066637 (Version 1)
Quarter: 2019Q4

REPORT INFORMATION
  Report Type: Spontaneous
  Country: US (occurrence: US)
  Receive Date: 20191023
  Receipt Date: 20191023
  Transmission Date: 20200122
  Serious: Yes (Hospitalization, Other)
  Sender: FDA-Public Use
  Company Number: None

PATIENT

DRUGS (2)
  1. EPOPROSTENOL. [Suspect]
     Active Substance: EPOPROSTENOL
  2. EPOPROSTENOL. [Suspect]
     Active Substance: EPOPROSTENOL

REACTIONS (6)
  - Device infusion issue [None]
  - Incorrect dose administered by device [None]
  - Dyspnoea [None]
  - Oxygen saturation abnormal [None]
  - Pulmonary hypertension [None]
  - Manufacturing equipment issue [None]

NARRATIVE: CASE EVENT DATE: 20191023
